FAERS Safety Report 7674735-1 (Version None)
Quarter: 2011Q3

REPORT INFORMATION
  Report Type: 
  Country: None (occurrence: None)
  Receive Date: 20110810
  Receipt Date: 20110803
  Transmission Date: 20111222
  Serious: Yes (Other)
  Sender: FDA-Public Use
  Company Number: CA-GLAXOSMITHKLINE-A0939452A

PATIENT
  Sex: Female
  Weight: 43.2 kg

DRUGS (1)
  1. ADVAIR DISKUS 100/50 [Suspect]
     Indication: ASTHMA
     Dosage: 1PUFF TWICE PER DAY
     Route: 055
     Dates: start: 20080101

REACTIONS (5)
  - RASH [None]
  - HEADACHE [None]
  - RASH ERYTHEMATOUS [None]
  - TREATMENT NONCOMPLIANCE [None]
  - ASTHMA [None]
